FAERS Safety Report 21141027 (Version 24)
Quarter: 2024Q3

REPORT INFORMATION
  Report Type: Report from Study
  Country: CA (occurrence: CA)
  Receive Date: 20220728
  Receipt Date: 20240923
  Transmission Date: 20241016
  Serious: Yes (Hospitalization, Other)
  Sender: JOHNSON AND JOHNSON
  Company Number: CA-JNJFOC-20220753178

PATIENT
  Age: 63 Year
  Sex: Male
  Weight: 107 kg

DRUGS (5)
  1. STELARA [Suspect]
     Active Substance: USTEKINUMAB
     Indication: Crohn^s disease
     Dosage: LAST DOSE: 02-AUG-2022?EXPIRY DATE- 31-MAR-2025?EXPIRY DATE- 30-OCT-2025
     Route: 058
     Dates: start: 20181213
  2. STELARA [Suspect]
     Active Substance: USTEKINUMAB
     Route: 058
  3. STELARA [Suspect]
     Active Substance: USTEKINUMAB
     Route: 058
  4. STELARA [Suspect]
     Active Substance: USTEKINUMAB
     Route: 058
     Dates: start: 20181213
  5. STELARA [Suspect]
     Active Substance: USTEKINUMAB
     Route: 058
     Dates: start: 20181218

REACTIONS (18)
  - Bacteraemia [Recovered/Resolved]
  - Peritonitis [Not Recovered/Not Resolved]
  - Cholecystitis infective [Recovered/Resolved]
  - Hepatic cancer [Not Recovered/Not Resolved]
  - Cough [Recovered/Resolved]
  - Lung perforation [Recovered/Resolved]
  - Ascites [Not Recovered/Not Resolved]
  - Diaphragmatic rupture [Recovered/Resolved]
  - Red blood cell count decreased [Not Recovered/Not Resolved]
  - Gastric varices [Recovering/Resolving]
  - Anaemia [Not Recovered/Not Resolved]
  - Bursitis [Recovered/Resolved]
  - Muscle atrophy [Recovered/Resolved]
  - Abdominal distension [Not Recovered/Not Resolved]
  - Dyspnoea [Recovering/Resolving]
  - Joint swelling [Unknown]
  - Fatigue [Not Recovered/Not Resolved]
  - Asthenia [Recovering/Resolving]

NARRATIVE: CASE EVENT DATE: 20220101
